FAERS Safety Report 5485053-4 (Version None)
Quarter: 2007Q4

REPORT INFORMATION
  Report Type: 
  Country: None (occurrence: None)
  Receive Date: 20071015
  Receipt Date: 20071001
  Transmission Date: 20080405
  Serious: Yes (Hospitalization, Other)
  Sender: FDA-Public Use
  Company Number: US-ELI_LILLY_AND_COMPANY-US200710000264

PATIENT
  Sex: Female

DRUGS (12)
  1. FORTEO [Suspect]
     Indication: OSTEOPOROSIS
     Dosage: UNK, UNK
     Dates: start: 20051201, end: 20070801
  2. CARDIZEM [Concomitant]
  3. HYDROCHLOROTHIAZIDE [Concomitant]
  4. TOPROL-XL [Concomitant]
  5. ALDACTONE [Concomitant]
  6. LIPITOR [Concomitant]
  7. SYNTHROID [Concomitant]
  8. ASPIRIN CHILDREN [Concomitant]
  9. POTASSIUM CHLORIDE [Concomitant]
  10. REGLAN [Concomitant]
  11. CELEXA [Concomitant]
  12. PREVACID [Concomitant]

REACTIONS (4)
  - GASTRIC ULCER HAEMORRHAGE [None]
  - HIATUS HERNIA [None]
  - IMPAIRED GASTRIC EMPTYING [None]
  - STOMACH DISCOMFORT [None]
